FAERS Safety Report 9133563 (Version 1)
Quarter: 2013Q1

REPORT INFORMATION
  Report Type: Report from Study
  Country: US (occurrence: US)
  Receive Date: 20130129
  Receipt Date: 20130129
  Transmission Date: 20140127
  Serious: No
  Sender: FDA-Public Use
  Company Number: US-ABBOTT-12P-163-0928892-00

PATIENT
  Age: 77 Year
  Sex: Male

DRUGS (4)
  1. HUMIRA 40 MG/ 0.8 ML PRE-FILLED SYRINGE [Suspect]
     Indication: RHEUMATOID ARTHRITIS
     Dates: start: 20120418, end: 20120502
  2. BLOOD PRESSURE MEDICINE [Concomitant]
     Indication: PRODUCT USED FOR UNKNOWN INDICATION
  3. BLOOD THINNER(S) [Concomitant]
     Indication: PRODUCT USED FOR UNKNOWN INDICATION
  4. OTHER MEDICATION(S) [Concomitant]
     Indication: PRODUCT USED FOR UNKNOWN INDICATION

REACTIONS (6)
  - Hot flush [Unknown]
  - Muscle spasms [Unknown]
  - Arthralgia [Unknown]
  - Arthralgia [Unknown]
  - Arthralgia [Not Recovered/Not Resolved]
  - Diarrhoea [Unknown]
